FAERS Safety Report 25418331 (Version 1)
Quarter: 2025Q2

REPORT INFORMATION
  Report Type: Spontaneous
  Country: US (occurrence: None)
  Receive Date: 20250606
  Receipt Date: 20250606
  Transmission Date: 20250717
  Serious: Yes (Hospitalization)
  Sender: FDA-CTU
  Company Number: None

PATIENT
  Age: 69 Year
  Sex: Male

DRUGS (1)
  1. OLANZAPINE [Suspect]
     Active Substance: OLANZAPINE
     Indication: Bipolar disorder
     Dosage: FREQUENCY : AT BEDTIME;?
     Route: 048

REACTIONS (6)
  - Parkinsonism [None]
  - Hypotension [None]
  - Fall [None]
  - Somnolence [None]
  - Off label use [None]
  - Orthostatic intolerance [None]

NARRATIVE: CASE EVENT DATE: 20250523
